FAERS Safety Report 18715198 (Version 1)
Quarter: 2021Q1

REPORT INFORMATION
  Report Type: Spontaneous
  Country: US (occurrence: US)
  Receive Date: 20210108
  Receipt Date: 20210108
  Transmission Date: 20210419
  Serious: Yes (Other)
  Sender: FDA-Public Use
  Company Number: US-DRREDDYS-USA/USA/21/0130873

PATIENT
  Age: 44 Year
  Sex: Female

DRUGS (1)
  1. SEVELAMER CARBONATE TABLETS, 800 MG [Suspect]
     Active Substance: SEVELAMER CARBONATE
     Indication: HYPERPHOSPHATAEMIA

REACTIONS (1)
  - Drug ineffective [Unknown]
